FAERS Safety Report 6544931-5 (Version None)
Quarter: 2010Q1

REPORT INFORMATION
  Report Type: 
  Country: None (occurrence: None)
  Receive Date: 20100121
  Receipt Date: 20100112
  Transmission Date: 20100710
  Serious: Yes (Other)
  Sender: FDA-Public Use
  Company Number: CHPA2010BR01125

PATIENT
  Sex: Male

DRUGS (1)
  1. SCOPOLAMINE [Suspect]
     Dosage: 1.5 MG, UNK
     Route: 062

REACTIONS (3)
  - APTYALISM [None]
  - PNEUMONIA ASPIRATION [None]
  - THERAPEUTIC RESPONSE UNEXPECTED [None]
